FAERS Safety Report 6054031-9 (Version None)
Quarter: 2009Q1

REPORT INFORMATION
  Report Type: 
  Country: None (occurrence: None)
  Receive Date: 20090127
  Receipt Date: 20090114
  Transmission Date: 20090719
  Serious: Yes (Hospitalization)
  Sender: FDA-Public Use
  Company Number: GB-AMGEN-UK326906

PATIENT
  Sex: Male

DRUGS (9)
  1. PANITUMUMAB [Suspect]
     Indication: GASTROOESOPHAGEAL CANCER
     Route: 065
     Dates: start: 20081223
  2. EPIRUBICIN [Suspect]
     Indication: CHEMOTHERAPY
     Route: 065
     Dates: start: 20081223
  3. OXALIPLATIN [Suspect]
     Indication: CHEMOTHERAPY
     Route: 065
     Dates: start: 20081223
  4. CAPECITABINE [Suspect]
     Indication: CHEMOTHERAPY
     Route: 065
     Dates: start: 20081223, end: 20090102
  5. SENNOSIDE [Concomitant]
     Route: 065
  6. DIPROBASE [Concomitant]
     Route: 061
  7. HYDROXYZINE HYDROCHLORIDE [Concomitant]
     Route: 065
  8. TETRACYCLINE [Concomitant]
     Route: 065
  9. DERMOL [Concomitant]
     Route: 061

REACTIONS (1)
  - CHEST PAIN [None]
